FAERS Safety Report 9639944 (Version 1)
Quarter: 2013Q4

REPORT INFORMATION
  Report Type: Spontaneous
  Country: None (occurrence: US)
  Receive Date: 20131023
  Receipt Date: 20131023
  Transmission Date: 20140711
  Serious: No
  Sender: FDA-Public Use
  Company Number: US-MYLANLABS-2013S1018005

PATIENT
  Sex: Female

DRUGS (2)
  1. CARBIDOPA AND LEVODOPA TABLETS USP [Suspect]
     Indication: ATAXIA
  2. CARBIDOPA AND LEVODOPA TABLETS USP [Suspect]
     Indication: OFF LABEL USE

REACTIONS (2)
  - Drug ineffective [Not Recovered/Not Resolved]
  - Ataxia [Not Recovered/Not Resolved]
